FAERS Safety Report 13825470 (Version 1)
Quarter: 2017Q3

REPORT INFORMATION
  Report Type: Report from Study
  Country: US (occurrence: US)
  Receive Date: 20170802
  Receipt Date: 20170802
  Transmission Date: 20171127
  Serious: Yes (Other)
  Sender: FDA-Public Use
  Company Number: US-AMGEN-USASL2017110108

PATIENT
  Age: 81 Year
  Sex: Female

DRUGS (16)
  1. PROLIA [Suspect]
     Active Substance: DENOSUMAB
     Indication: OSTEOPOROSIS
     Dosage: 60 MG, Q6MO
     Route: 058
     Dates: start: 201502
  2. RESTASIS [Concomitant]
     Active Substance: CYCLOSPORINE
  3. VITAMIN C [Concomitant]
     Active Substance: ASCORBIC ACID
  4. CALCIUM [Concomitant]
     Active Substance: CALCIUM
     Dosage: 500 MG, BID
  5. ASPIRIN. [Concomitant]
     Active Substance: ASPIRIN
     Dosage: 81 MG, QD
  6. VITAMIN B COMPLEX [Concomitant]
     Active Substance: CYANOCOBALAMIN\DEXPANTHENOL\NIACINAMIDE\PYRIDOXINE HYDROCHLORIDE\RIBOFLAVIN 5^-PHOSPHATE SODIUM\THIAMINE HYDROCHLORIDE\VITAMIN B COMPLEX
  7. HYDROCODONE BITARTRATE AND ACETAMINOPHEN [Concomitant]
     Active Substance: ACETAMINOPHEN\HYDROCODONE BITARTRATE
  8. PREVACID [Concomitant]
     Active Substance: LANSOPRAZOLE
     Dosage: 15 MG, BID
  9. COENZYME Q10 [Concomitant]
     Active Substance: UBIDECARENONE
  10. FORTEO [Concomitant]
     Active Substance: TERIPARATIDE
     Dosage: 20 MUG, QD
     Dates: start: 201605
  11. VITAMIN D [Concomitant]
     Active Substance: CHOLECALCIFEROL
     Dosage: 400 IU, BID
  12. MURO 128 [Concomitant]
     Active Substance: SODIUM CHLORIDE
  13. FISH OIL [Concomitant]
     Active Substance: FISH OIL
  14. PROLIA [Suspect]
     Active Substance: DENOSUMAB
     Indication: GASTROOESOPHAGEAL REFLUX DISEASE
  15. AVAPRO [Concomitant]
     Active Substance: IRBESARTAN
     Dosage: 300 MG, QD
  16. CENTRUM SILVER [Concomitant]
     Active Substance: MINERALS\VITAMINS

REACTIONS (11)
  - Hyperlipidaemia [Unknown]
  - Portal hypertension [Unknown]
  - Off label use [Unknown]
  - Cerebrovascular accident [Unknown]
  - Asthma [Unknown]
  - Hepatic cirrhosis [Unknown]
  - Chronic kidney disease [Unknown]
  - Hypertension [Unknown]
  - Thoracic vertebral fracture [Unknown]
  - Peptic ulcer [Unknown]
  - Coronary artery disease [Unknown]
